FAERS Safety Report 7495292-9 (Version None)
Quarter: 2011Q2

REPORT INFORMATION
  Report Type: 
  Country: None (occurrence: None)
  Receive Date: 20110523
  Receipt Date: 20110517
  Transmission Date: 20111010
  Serious: Yes (Hospitalization, Other)
  Sender: FDA-Public Use
  Company Number: US-BRISTOL-MYERS SQUIBB COMPANY-15679921

PATIENT
  Age: 79 Year
  Sex: Male
  Weight: 74 kg

DRUGS (9)
  1. ERBITUX [Suspect]
     Indication: NON-SMALL CELL LUNG CANCER
     Dosage: LAST ADMINISTERED:05APR2011
     Dates: start: 20110215
  2. PRILOSEC [Concomitant]
  3. ALUMINUM HYDROXIDE TAB [Concomitant]
  4. TAXOL [Suspect]
     Indication: NON-SMALL CELL LUNG CANCER
     Dosage: LAST ADMINISTERED:05APR2011
     Dates: start: 20110215
  5. PHENERGAN HCL [Concomitant]
  6. ROXANOL [Concomitant]
  7. ZOFRAN [Concomitant]
  8. LIDOCAINE HCL VISCOUS [Concomitant]
     Dosage: MOUTHWASH
  9. CARBOPLATIN [Suspect]
     Indication: NON-SMALL CELL LUNG CANCER
     Dosage: LAST ADMINISTERED:05APR2011
     Dates: start: 20110215

REACTIONS (6)
  - ABDOMINAL DISTENSION [None]
  - ABDOMINAL PAIN [None]
  - VOMITING [None]
  - DIARRHOEA [None]
  - NAUSEA [None]
  - FATIGUE [None]
